FAERS Safety Report 18153304 (Version 3)
Quarter: 2020Q3

REPORT INFORMATION
  Report Type: Spontaneous
  Country: US (occurrence: US)
  Receive Date: 20200815
  Receipt Date: 20200823
  Transmission Date: 20201103
  Serious: No
  Sender: FDA-Public Use
  Company Number: US-ACTELION-A-US2020-208366

PATIENT
  Sex: Male
  Weight: 74.83 kg

DRUGS (4)
  1. ELIQUIS [Concomitant]
     Active Substance: APIXABAN
  2. TADALAFIL. [Concomitant]
     Active Substance: TADALAFIL
  3. UPTRAVI [Suspect]
     Active Substance: SELEXIPAG
     Dosage: 200 MCG, BID
     Route: 048
  4. UPTRAVI [Suspect]
     Active Substance: SELEXIPAG
     Indication: PULMONARY ARTERIAL HYPERTENSION
     Dosage: 400 MCG, BID
     Route: 048
     Dates: end: 20200807

REACTIONS (12)
  - Pain [Unknown]
  - Dyspnoea [Unknown]
  - Arthralgia [Unknown]
  - Musculoskeletal discomfort [Unknown]
  - Limb discomfort [Unknown]
  - Pain in extremity [Unknown]
  - Mucosal discolouration [Unknown]
  - Neck pain [Unknown]
  - Poor quality sleep [Unknown]
  - Myalgia [Unknown]
  - Diarrhoea [Unknown]
  - Haemoptysis [Recovering/Resolving]
